FAERS Safety Report 7281697-8 (Version None)
Quarter: 2010Q4

REPORT INFORMATION
  Report Type: 
  Country: None (occurrence: None)
  Receive Date: 20101221
  Receipt Date: 20100310
  Transmission Date: 20110411
  Serious: Yes (Hospitalization)
  Sender: FDA-Public Use
  Company Number: WAES 1003USA01806

PATIENT
  Sex: Male

DRUGS (11)
  1. JANUVIA [Suspect]
     Indication: TYPE 2 DIABETES MELLITUS
     Dosage: 100 MG/DAILY/PO
     Route: 048
     Dates: start: 20070101, end: 20100201
  2. ARAVA [Concomitant]
  3. EXFORGE [Concomitant]
  4. LASIX [Concomitant]
  5. MICRONASE [Concomitant]
  6. NPH INSULIN [Concomitant]
  7. PLAQUENIL [Concomitant]
  8. PRECOSE [Concomitant]
  9. ZOCOR [Concomitant]
  10. ALLOPURINOL [Concomitant]
  11. ATENOLOL [Concomitant]

REACTIONS (1)
  - PANCREATITIS ACUTE [None]
